FAERS Safety Report 5476559-2 (Version None)
Quarter: 2007Q3

REPORT INFORMATION
  Report Type: 
  Country: None (occurrence: None)
  Receive Date: 20070927
  Receipt Date: 20061109
  Transmission Date: 20080115
  Serious: Yes (Hospitalization)
  Sender: FDA-Public Use
  Company Number: FABR-11732

PATIENT
  Age: 32 Year
  Sex: Male
  Weight: 80 kg

DRUGS (3)
  1. FABRAZYME [Suspect]
     Indication: FABRY'S DISEASE
     Dosage: 80 MG Q4WKS IV
     Route: 042
     Dates: start: 20040426
  2. BENADRYL [Concomitant]
  3. HYDROCORTISONE [Concomitant]

REACTIONS (1)
  - CHEST DISCOMFORT [None]
